FAERS Safety Report 9074562 (Version 1)
Quarter: 2013Q1

REPORT INFORMATION
  Report Type: Report from Study
  Country: US (occurrence: US)
  Receive Date: 20130129
  Receipt Date: 20130129
  Transmission Date: 20140127
  Serious: No
  Sender: FDA-Public Use
  Company Number: US-ABBOTT-12P-163-0928804-00

PATIENT
  Age: 19 Year
  Sex: Female

DRUGS (2)
  1. HUMIRA 40 MG/0.8 ML PEN [Suspect]
     Indication: PSORIASIS
     Dates: start: 20120420
  2. VITAMINS [Concomitant]
     Indication: ILL-DEFINED DISORDER

REACTIONS (3)
  - Chromaturia [Unknown]
  - Cystitis [Recovering/Resolving]
  - Treatment noncompliance [Unknown]
